FAERS Safety Report 8536732-3 (Version None)
Quarter: 2012Q3

REPORT INFORMATION
  Report Type: 
  Country: None (occurrence: None)
  Receive Date: 20120725
  Receipt Date: 20120717
  Transmission Date: 20120928
  Serious: Yes (Hospitalization)
  Sender: FDA-Public Use
  Company Number: US-US-EMD SERONO, INC.-7145738

PATIENT
  Sex: Female

DRUGS (2)
  1. REBIF [Suspect]
     Indication: MULTIPLE SCLEROSIS
     Dates: start: 20071003
  2. REBIF [Suspect]
     Route: 058
     Dates: start: 20120701

REACTIONS (9)
  - BALANCE DISORDER [None]
  - INJECTION SITE DISCOLOURATION [None]
  - HYPERTENSION [None]
  - WEIGHT DECREASED [None]
  - VOMITING [None]
  - URINARY TRACT INFECTION [None]
  - NAUSEA [None]
  - HEART RATE DECREASED [None]
  - CHEST PAIN [None]
